FAERS Safety Report 9520591 (Version 1)
Quarter: 2013Q3

REPORT INFORMATION
  Report Type: Spontaneous
  Country: DE (occurrence: DE)
  Receive Date: 20130913
  Receipt Date: 20130913
  Transmission Date: 20140515
  Serious: Yes (Hospitalization)
  Sender: FDA-Public Use
  Company Number: DE-BIOGENIDEC-2013BI086882

PATIENT
  Age: 54 Year
  Sex: Male
  Weight: 106 kg

DRUGS (1)
  1. AVONEX [Suspect]
     Indication: MULTIPLE SCLEROSIS
     Route: 030
     Dates: start: 20111101

REACTIONS (5)
  - Arthropathy [Recovered/Resolved]
  - Hypoaesthesia [Not Recovered/Not Resolved]
  - Band sensation [Not Recovered/Not Resolved]
  - Balance disorder [Not Recovered/Not Resolved]
  - Muscle spasticity [Not Recovered/Not Resolved]
